FAERS Safety Report 15065575 (Version 1)
Quarter: 2018Q2

REPORT INFORMATION
  Report Type: Other
  Country: DE (occurrence: DE)
  Receive Date: 20180626
  Receipt Date: 20180626
  Transmission Date: 20180711
  Serious: Yes (Congenital Anomaly)
  Sender: FDA-Public Use
  Company Number: DE-MERCK KGAA-2049941

PATIENT
  Sex: Male

DRUGS (7)
  1. LEVOTHYROXINE. [Suspect]
     Active Substance: LEVOTHYROXINE
  2. RAMIPRIL. [Suspect]
     Active Substance: RAMIPRIL
  3. SITAGLIPTIN [Suspect]
     Active Substance: SITAGLIPTIN
  4. METHYLDOPA. [Suspect]
     Active Substance: METHYLDOPA
  5. NOVOTHYROX [Suspect]
     Active Substance: LEVOTHYROXINE SODIUM
     Indication: PRODUCT USED FOR UNKNOWN INDICATION
  6. METOPROLOL. [Suspect]
     Active Substance: METOPROLOL
  7. METFORMIN HYDROCHLORIDE. [Suspect]
     Active Substance: METFORMIN HYDROCHLORIDE

REACTIONS (3)
  - Atrial septal defect [Unknown]
  - Large for dates baby [Unknown]
  - Foetal exposure during pregnancy [Recovered/Resolved]
